FAERS Safety Report 7572880-2 (Version None)
Quarter: 2011Q2

REPORT INFORMATION
  Report Type: 
  Country: None (occurrence: None)
  Receive Date: 20110627
  Receipt Date: 20110613
  Transmission Date: 20111010
  Serious: Yes (Hospitalization, Other)
  Sender: FDA-Public Use
  Company Number: CA-ELI_LILLY_AND_COMPANY-CA201106003373

PATIENT
  Sex: Male

DRUGS (8)
  1. TYLENOL W/ CODEINE NO. 3 [Concomitant]
  2. RABEPRAZOLE SODIUM [Concomitant]
  3. VALPROATE SODIUM [Concomitant]
  4. SEROQUEL [Concomitant]
  5. ZOCOR [Concomitant]
  6. ZYPREXA [Suspect]
     Indication: BIPOLAR I DISORDER
     Dosage: 10 MG, EACH EVENING
  7. PROZAC [Concomitant]
  8. PURINOL [Concomitant]

REACTIONS (8)
  - IRON DEFICIENCY ANAEMIA [None]
  - MEAN CELL VOLUME ABNORMAL [None]
  - HAEMATOCHEZIA [None]
  - THROMBOCYTOPENIA [None]
  - PANCREATITIS ACUTE [None]
  - SPLENOMEGALY [None]
  - ANAEMIA [None]
  - ERYTHROID SERIES ABNORMAL [None]
